FAERS Safety Report 15883410 (Version 3)
Quarter: 2019Q2

REPORT INFORMATION
  Report Type: Spontaneous
  Country: ES (occurrence: ES)
  Receive Date: 20190129
  Receipt Date: 20190615
  Transmission Date: 20190711
  Serious: Yes (Death, Life-Threatening, Hospitalization, Other)
  Sender: FDA-Public Use
  Company Number: ES-ACCORD-103342

PATIENT
  Age: 81 Year
  Sex: Female

DRUGS (6)
  1. LINEZOLID. [Suspect]
     Active Substance: LINEZOLID
     Indication: ANTIBIOTIC THERAPY
     Route: 065
  2. PARACETAMOL [Suspect]
     Active Substance: ACETAMINOPHEN
     Indication: INJURY
  3. MEROPENEM. [Suspect]
     Active Substance: MEROPENEM
     Indication: ANTIBIOTIC THERAPY
     Route: 065
  4. METAMIZOLE SODIUM [Suspect]
     Active Substance: METAMIZOLE SODIUM
     Indication: PRODUCT USED FOR UNKNOWN INDICATION
  5. PIPERACILLIN/TAZOBACTAM [Suspect]
     Active Substance: PIPERACILLIN SODIUM\TAZOBACTAM SODIUM
     Indication: ANTIBIOTIC THERAPY
     Route: 065
  6. FUROSEMIDE. [Suspect]
     Active Substance: FUROSEMIDE
     Indication: ANTIBIOTIC THERAPY
     Route: 065

REACTIONS (13)
  - Off label use [Unknown]
  - Dyspnoea [Fatal]
  - Chills [Fatal]
  - Dysuria [Fatal]
  - Acute respiratory failure [Fatal]
  - Acute kidney injury [Unknown]
  - Female genital tract fistula [Fatal]
  - Thrombocytopenia [Fatal]
  - Cardiac failure [Fatal]
  - Febrile neutropenia [Fatal]
  - Pneumonia [Fatal]
  - Urosepsis [Fatal]
  - Respiratory tract infection [Fatal]
